FAERS Safety Report 25785826 (Version 1)
Quarter: 2025Q3

REPORT INFORMATION
  Report Type: Spontaneous
  Country: US (occurrence: None)
  Receive Date: 20250909
  Receipt Date: 20250909
  Transmission Date: 20251021
  Serious: Yes (Hospitalization)
  Sender: FDA-CTU
  Company Number: None

PATIENT
  Sex: Male

DRUGS (6)
  1. LORBRENA [Suspect]
     Active Substance: LORLATINIB
     Indication: Adrenal gland cancer
     Dosage: OTHER QUANTITY : 3 DOSES;?FREQUENCY : DAILY;?
     Route: 048
     Dates: start: 20250623
  2. CYPROHEPTAD SYP 2MG/5ML [Concomitant]
  3. ENULOSE SOL 10GM/15 [Concomitant]
  4. ONDANSETRON [Concomitant]
     Active Substance: ONDANSETRON
  5. SULFAMETHOX POW [Concomitant]
  6. TYLENOL CHI L SUS 160-5 [Concomitant]

REACTIONS (1)
  - Hospitalisation [None]
